FAERS Safety Report 10983414 (Version 2)
Quarter: 2015Q2

REPORT INFORMATION
  Report Type: Spontaneous
  Country: BR (occurrence: BR)
  Receive Date: 20150403
  Receipt Date: 20150415
  Transmission Date: 20150821
  Serious: No
  Sender: FDA-Public Use
  Company Number: BR-PFIZER INC-2015113861

PATIENT
  Age: 57 Year
  Sex: Male

DRUGS (1)
  1. CAVERJECT [Suspect]
     Active Substance: ALPROSTADIL
     Indication: ERECTILE DYSFUNCTION
     Dosage: 2 OR 3 X/WEEK, USING STRENGTH 20 UG OR 10 UG
     Dates: start: 200611

REACTIONS (1)
  - No adverse event [Unknown]
